FAERS Safety Report 7583705-3 (Version None)
Quarter: 2011Q2

REPORT INFORMATION
  Report Type: 
  Country: None (occurrence: None)
  Receive Date: 20110630
  Receipt Date: 20110622
  Transmission Date: 20111010
  Serious: Yes (Hospitalization)
  Sender: FDA-Public Use
  Company Number: B0727788A

PATIENT
  Sex: Male
  Weight: 73 kg

DRUGS (9)
  1. CARBOPLATIN [Concomitant]
     Indication: LUNG ADENOCARCINOMA
     Route: 065
  2. SPIRONONE [Concomitant]
     Indication: PLEURAL EFFUSION
     Dosage: 25MG IN THE MORNING
     Route: 050
     Dates: start: 20110131
  3. ATORVASTATIN CALCIUM [Concomitant]
     Dosage: 10MG PER DAY
     Route: 065
  4. ASPIRIN [Concomitant]
     Dosage: 160MG PER DAY
     Route: 065
  5. ALIMTA [Concomitant]
     Indication: LUNG ADENOCARCINOMA
     Route: 065
  6. TAXOTERE [Concomitant]
     Indication: LUNG ADENOCARCINOMA
     Route: 065
  7. ACETAMINOPHEN [Concomitant]
     Route: 065
     Dates: end: 20110131
  8. ARIXTRA [Suspect]
     Indication: PULMONARY EMBOLISM
     Dosage: 7.5MG PER DAY
     Route: 058
     Dates: start: 20110103, end: 20110122
  9. HEPARIN [Concomitant]
     Route: 065

REACTIONS (11)
  - PROTHROMBIN TIME RATIO DECREASED [None]
  - PLEURAL EFFUSION [None]
  - CONDITION AGGRAVATED [None]
  - PARAESTHESIA [None]
  - CHEST PAIN [None]
  - METASTATIC BRONCHIAL CARCINOMA [None]
  - PERICARDITIS MALIGNANT [None]
  - LYMPHANGIOSIS CARCINOMATOSA [None]
  - DYSPNOEA [None]
  - NEOPLASM PROGRESSION [None]
  - PULMONARY EMBOLISM [None]
